FAERS Safety Report 6686288-5 (Version None)
Quarter: 2010Q2

REPORT INFORMATION
  Report Type: 
  Country: None (occurrence: None)
  Receive Date: 20100414
  Receipt Date: 20100401
  Transmission Date: 20101027
  Serious: Yes (Hospitalization, Other)
  Sender: FDA-Public Use
  Company Number: 2010BM000072

PATIENT
  Age: 11 Year
  Sex: Female

DRUGS (1)
  1. NAGLAZYME [Suspect]
     Indication: MUCOPOLYSACCHARIDOSIS VI
     Dosage: 4 VIALS;QW;IVDRP
     Route: 041
     Dates: start: 20090205

REACTIONS (1)
  - INTRACRANIAL PRESSURE INCREASED [None]
